FAERS Safety Report 23258847 (Version 1)
Quarter: 2023Q4

REPORT INFORMATION
  Report Type: Spontaneous
  Country: US (occurrence: None)
  Receive Date: 20231203
  Receipt Date: 20231203
  Transmission Date: 20240110
  Serious: Yes (Life-Threatening, Disabling)
  Sender: FDA-Public Use
  Company Number: None

PATIENT
  Age: 35 Year
  Sex: Female
  Weight: 45 kg

DRUGS (1)
  1. LEVOFLOXACIN [Suspect]
     Active Substance: LEVOFLOXACIN
     Indication: Urinary tract infection
     Dosage: OTHER QUANTITY : 4 TABLET(S);?FREQUENCY : DAILY;?
     Route: 048
     Dates: start: 20151007, end: 20151010

REACTIONS (25)
  - Diplegia [None]
  - Diplegia [None]
  - Arrhythmia [None]
  - Irregular breathing [None]
  - Neuropathy peripheral [None]
  - Insomnia [None]
  - Nightmare [None]
  - Hypoglycaemia [None]
  - Arthralgia [None]
  - Myalgia [None]
  - Bone pain [None]
  - Joint noise [None]
  - Tendon rupture [None]
  - Nervous system disorder [None]
  - Hyperacusis [None]
  - Nervousness [None]
  - Tremor [None]
  - Headache [None]
  - Gastrointestinal disorder [None]
  - Dysbiosis [None]
  - Chronic fatigue syndrome [None]
  - Panic attack [None]
  - Joint dislocation [None]
  - Asthenia [None]
  - Fatigue [None]

NARRATIVE: CASE EVENT DATE: 20151015
